FAERS Safety Report 13584296 (Version 3)
Quarter: 2017Q4

REPORT INFORMATION
  Report Type: Spontaneous
  Country: US (occurrence: US)
  Receive Date: 20170526
  Receipt Date: 20171109
  Transmission Date: 20180320
  Serious: No
  Sender: FDA-Public Use
  Company Number: US-PFIZER INC-2017230785

PATIENT
  Age: 55 Year
  Sex: Female

DRUGS (1)
  1. XELJANZ XR [Suspect]
     Active Substance: TOFACITINIB CITRATE
     Indication: RHEUMATOID ARTHRITIS
     Dosage: 11 MG, 1X/DAY
     Route: 048
     Dates: start: 201703

REACTIONS (10)
  - Red blood cell sedimentation rate increased [Unknown]
  - Ear infection [Unknown]
  - Blood pressure increased [Unknown]
  - Weight increased [Unknown]
  - Immune system disorder [Unknown]
  - Arthralgia [Unknown]
  - White blood cell count increased [Unknown]
  - Bronchitis [Unknown]
  - Lymphocyte count increased [Unknown]
  - Pharyngitis streptococcal [Unknown]
